FAERS Safety Report 12790187 (Version 1)
Quarter: 2016Q3

REPORT INFORMATION
  Report Type: Spontaneous
  Country: DE (occurrence: DE)
  Receive Date: 20160928
  Receipt Date: 20160928
  Transmission Date: 20161109
  Serious: Yes (Hospitalization)
  Sender: FDA-Public Use
  Company Number: GXKR2016DE004513

PATIENT

DRUGS (1)
  1. CIPRO 1A PHARMA [Suspect]
     Active Substance: CIPROFLOXACIN\CIPROFLOXACIN HYDROCHLORIDE
     Indication: PYELONEPHRITIS
     Dosage: 1 DF, TWICE DAILY
     Route: 048
     Dates: start: 20160817

REACTIONS (11)
  - Panic attack [Unknown]
  - Partial seizures [Unknown]
  - Tremor [Unknown]
  - Heart rate increased [Unknown]
  - Hypertension [Unknown]
  - Myalgia [Unknown]
  - Visual impairment [Unknown]
  - Restlessness [Unknown]
  - Muscle twitching [Unknown]
  - Depression [Unknown]
  - Tendon sheath disorder [Unknown]

NARRATIVE: CASE EVENT DATE: 20160825
